FAERS Safety Report 14495179 (Version 2)
Quarter: 2018Q1

REPORT INFORMATION
  Report Type: Report from Study
  Country: US (occurrence: US)
  Receive Date: 20180206
  Receipt Date: 20180315
  Transmission Date: 20180509
  Serious: Yes (Hospitalization, Disabling)
  Sender: FDA-Public Use
  Company Number: US-ACTELION-A-US2017-162756

PATIENT
  Age: 89 Year
  Sex: Female

DRUGS (12)
  1. ADCIRCA [Concomitant]
     Active Substance: TADALAFIL
  2. LACTAID [Concomitant]
     Active Substance: LACTASE
  3. IRON [Concomitant]
     Active Substance: IRON
  4. TYLENOL [Concomitant]
     Active Substance: ACETAMINOPHEN
  5. TRACLEER [Suspect]
     Active Substance: BOSENTAN
     Indication: PULMONARY HYPERTENSION
     Route: 048
  6. DICYCLOMINE [Concomitant]
     Active Substance: DICYCLOMINE HYDROCHLORIDE
  7. SENNA [Concomitant]
     Active Substance: SENNA LEAF\SENNOSIDES\SENNOSIDES A AND B
  8. OPSUMIT [Suspect]
     Active Substance: MACITENTAN
     Indication: PULMONARY HYPERTENSION
     Dosage: 10 MG, QD
     Route: 048
     Dates: start: 20170905
  9. VICODIN [Concomitant]
     Active Substance: ACETAMINOPHEN\HYDROCODONE BITARTRATE
  10. VITAMIN C [Concomitant]
     Active Substance: ASCORBIC ACID
  11. CALCIUM W/VITAMIN D3 [Concomitant]
     Active Substance: CALCIUM\CHOLECALCIFEROL
  12. TORSEMIDE. [Concomitant]
     Active Substance: TORSEMIDE

REACTIONS (6)
  - Hypoacusis [Not Recovered/Not Resolved]
  - Pneumonia [Recovering/Resolving]
  - Lung infiltration [Recovering/Resolving]
  - Cough [Recovering/Resolving]
  - Malaise [Unknown]
  - Pyrexia [Recovering/Resolving]
